FAERS Safety Report 4305434-1 (Version None)
Quarter: 2004Q1

REPORT INFORMATION
  Report Type: 
  Country: None (occurrence: None)
  Receive Date: 20040226
  Receipt Date: 20031204
  Transmission Date: 20041129
  Serious: Yes (Other)
  Sender: FDA-Public Use
  Company Number: US-BRISTOL-MYERS SQUIBB COMPANY-12451662

PATIENT
  Sex: Female

DRUGS (2)
  1. TAXOL [Suspect]
     Indication: FALLOPIAN TUBE CANCER
     Route: 042
  2. CARBOPLATIN [Suspect]
     Indication: FALLOPIAN TUBE CANCER
     Route: 042

REACTIONS (1)
  - ILEUS [None]
